FAERS Safety Report 10219660 (Version 1)
Quarter: 2014Q2

REPORT INFORMATION
  Report Type: Spontaneous
  Country: US (occurrence: US)
  Receive Date: 20140605
  Receipt Date: 20140605
  Transmission Date: 20141212
  Serious: Yes (Hospitalization)
  Sender: FDA-Public Use
  Company Number: US-B.I. PHARMACEUTICALS,INC./RIDGEFIELD-2014-BI-24852BP

PATIENT
  Age: 84 Year
  Sex: Male

DRUGS (6)
  1. PRADAXA [Suspect]
     Indication: ATRIAL FIBRILLATION
     Dosage: 150 MG
     Route: 048
     Dates: start: 201403, end: 20140512
  2. CARVEDILOL [Concomitant]
     Indication: CARDIAC FAILURE CONGESTIVE
     Route: 065
  3. BUMEX [Concomitant]
     Indication: CARDIAC FAILURE CONGESTIVE
     Route: 065
  4. LISINOPRIL [Concomitant]
     Indication: HYPERTENSION
     Route: 065
  5. OMEPRAZOLE [Concomitant]
     Route: 065
  6. ALLOPURINOL [Concomitant]
     Indication: GOUT
     Route: 065

REACTIONS (1)
  - Subdural haematoma [Recovered/Resolved]
